FAERS Safety Report 23778731 (Version 2)
Quarter: 2024Q2

REPORT INFORMATION
  Report Type: Spontaneous
  Country: US (occurrence: US)
  Receive Date: 20240424
  Receipt Date: 20240524
  Transmission Date: 20240716
  Serious: Yes (Other)
  Sender: FDA-Public Use
  Company Number: US-BAYER-2024A059644

PATIENT
  Age: 22 Year
  Sex: Female

DRUGS (1)
  1. MIRENA [Suspect]
     Active Substance: LEVONORGESTREL
     Indication: Intrauterine contraception
     Dosage: 20?G/DAY
     Route: 015
     Dates: start: 202204, end: 20240417

REACTIONS (5)
  - Vaginal cyst [Recovered/Resolved]
  - Device expulsion [Recovered/Resolved]
  - Post procedural haemorrhage [Recovered/Resolved]
  - Haemorrhage [None]
  - Vaginal haematoma [Recovered/Resolved]

NARRATIVE: CASE EVENT DATE: 20240417
